FAERS Safety Report 17124411 (Version 3)
Quarter: 2019Q4

REPORT INFORMATION
  Report Type: Spontaneous
  Country: GR (occurrence: GR)
  Receive Date: 20191206
  Receipt Date: 20191223
  Transmission Date: 20200122
  Serious: Yes (Hospitalization, Other)
  Sender: FDA-Public Use
  Company Number: GR-JNJFOC-20191139966

PATIENT
  Age: 47 Year
  Sex: Male

DRUGS (4)
  1. REMICADE [Suspect]
     Active Substance: INFLIXIMAB
     Indication: RHEUMATOID ARTHRITIS
     Route: 042
  2. METHOTREXATE SODIUM. [Suspect]
     Active Substance: METHOTREXATE SODIUM
     Indication: RHEUMATOID ARTHRITIS
  3. REMICADE [Suspect]
     Active Substance: INFLIXIMAB
     Indication: IMMUNOSUPPRESSION
  4. METHOTREXATE SODIUM. [Suspect]
     Active Substance: METHOTREXATE SODIUM
     Indication: IMMUNOSUPPRESSION
     Dosage: UNK
     Route: 065

REACTIONS (13)
  - Hepatomegaly [Recovering/Resolving]
  - Hepatosplenomegaly [Recovering/Resolving]
  - Visceral leishmaniasis [Unknown]
  - Hyperhidrosis [Recovering/Resolving]
  - Platelet count decreased [Unknown]
  - Inflammatory marker increased [Unknown]
  - Coagulation time prolonged [Unknown]
  - Pyrexia [Recovering/Resolving]
  - Hypofibrinogenaemia [Unknown]
  - Myalgia [Recovering/Resolving]
  - Haematocrit decreased [Unknown]
  - Inflammation [Unknown]
  - Headache [Recovering/Resolving]
